FAERS Safety Report 20167696 (Version 1)
Quarter: 2021Q4

REPORT INFORMATION
  Report Type: Spontaneous
  Country: NO (occurrence: NO)
  Receive Date: 20211209
  Receipt Date: 20211209
  Transmission Date: 20220303
  Serious: Yes (Disabling)
  Sender: FDA-Public Use
  Company Number: NO-TAKEDA-2021TEU010233

PATIENT
  Age: 40 Year
  Sex: Female

DRUGS (2)
  1. PROCRIN [Suspect]
     Active Substance: LEUPROLIDE ACETATE
     Indication: Endometriosis
     Dosage: 3.75 MILLILITER
     Route: 058
     Dates: start: 20201103
  2. PROCRIN [Suspect]
     Active Substance: LEUPROLIDE ACETATE
     Indication: Adenomyosis
     Route: 058

REACTIONS (25)
  - Visual impairment [Not Recovered/Not Resolved]
  - Depressed mood [Unknown]
  - Gait disturbance [Unknown]
  - Hair colour changes [Unknown]
  - Mucosal dryness [Unknown]
  - Balance disorder [Unknown]
  - Neuralgia [Unknown]
  - Indifference [Unknown]
  - Dementia [Unknown]
  - Abdominal distension [Unknown]
  - Confusional state [Unknown]
  - Dry skin [Unknown]
  - Musculoskeletal stiffness [Unknown]
  - Decreased appetite [Unknown]
  - Bone pain [Unknown]
  - Night sweats [Unknown]
  - Weight increased [Unknown]
  - Headache [Unknown]
  - Asthenia [Unknown]
  - Nausea [Unknown]
  - Dizziness [Unknown]
  - Vomiting [Unknown]
  - Sleep disorder [Unknown]
  - Arthralgia [Unknown]
  - Hot flush [Unknown]

NARRATIVE: CASE EVENT DATE: 20201104
